FAERS Safety Report 7268692-X (Version None)
Quarter: 2011Q1

REPORT INFORMATION
  Report Type: 
  Country: None (occurrence: None)
  Receive Date: 20110201
  Receipt Date: 20110126
  Transmission Date: 20110831
  Serious: Yes (Hospitalization, Other)
  Sender: FDA-Public Use
  Company Number: US-B.I. PHARMACEUTICALS,INC./RIDGEFIELD-2011-BP-01571BP

PATIENT
  Age: 78 Year
  Sex: Male

DRUGS (1)
  1. PRADAXA [Suspect]
     Route: 048

REACTIONS (5)
  - GASTROINTESTINAL HAEMORRHAGE [None]
  - ARTERIOVENOUS MALFORMATION [None]
  - BLOOD CREATININE INCREASED [None]
  - CREATININE URINE INCREASED [None]
  - HAEMATOCRIT DECREASED [None]
